FAERS Safety Report 5265731-2 (Version None)
Quarter: 2007Q1

REPORT INFORMATION
  Report Type: 
  Country: None (occurrence: None)
  Receive Date: 20061213
  Receipt Date: 20041103
  Transmission Date: 20070707
  Serious: Yes (Other)
  Sender: FDA-Public Use
  Company Number: 2004UW22760

PATIENT
  Age: 43 Year
  Sex: Female

DRUGS (1)
  1. IRESSA [Suspect]
     Indication: LARGE CELL LUNG CANCER RECURRENT

REACTIONS (3)
  - DECREASED APPETITE [None]
  - DIARRHOEA [None]
  - WEIGHT DECREASED [None]
